FAERS Safety Report 7015672-5 (Version None)
Quarter: 2010Q3

REPORT INFORMATION
  Report Type: 
  Country: None (occurrence: None)
  Receive Date: 20100922
  Receipt Date: 20100906
  Transmission Date: 20110219
  Serious: Yes (Other)
  Sender: FDA-Public Use
  Company Number: GB-1183312

PATIENT
  Age: 52 Year
  Sex: Male

DRUGS (2)
  1. NEVANAC (NEPAFENAC) 0.1 % OPHTHALMIC SUSPENSION LOT# 09C03G EYE DROPS, [Suspect]
     Dosage: QID [2] QID, OPHTHALMIC
     Route: 047
     Dates: start: 20100217
  2. MAXIDEX [Suspect]
     Dosage: QID
     Route: 047
     Dates: start: 20100209, end: 20100301

REACTIONS (4)
  - CORNEAL EPITHELIUM DEFECT [None]
  - EYE PAIN [None]
  - LACRIMATION INCREASED [None]
  - VISION BLURRED [None]
